FAERS Safety Report 22028865 (Version 2)
Quarter: 2023Q1

REPORT INFORMATION
  Report Type: Spontaneous
  Country: IN (occurrence: IN)
  Receive Date: 20230223
  Receipt Date: 20230303
  Transmission Date: 20230417
  Serious: Yes (Death, Hospitalization)
  Sender: FDA-Public Use
  Company Number: IN-MYLANLABS-2023M1020390

PATIENT
  Age: 36 Week
  Sex: Female

DRUGS (17)
  1. MEROPENEM [Suspect]
     Active Substance: MEROPENEM
     Indication: COVID-19 pneumonia
     Dosage: UNK
     Route: 065
  2. LEVOFLOXACIN [Suspect]
     Active Substance: LEVOFLOXACIN
     Indication: COVID-19 pneumonia
     Dosage: UNK
     Route: 065
  3. METHYLPREDNISOLONE [Suspect]
     Active Substance: METHYLPREDNISOLONE
     Indication: COVID-19 pneumonia
     Dosage: 1 MILLIGRAM/KILOGRAM, QD
     Route: 042
  4. REMDESIVIR [Suspect]
     Active Substance: REMDESIVIR
     Indication: COVID-19 pneumonia
     Dosage: 5 MILLIGRAM/KILOGRAM, A LOADING DOSE
     Route: 065
  5. REMDESIVIR [Suspect]
     Active Substance: REMDESIVIR
     Dosage: 2.5 MILLIGRAM/KILOGRAM, FOR NEXT 4 DAYS.
     Route: 065
  6. SILDENAFIL [Suspect]
     Active Substance: SILDENAFIL
     Indication: Pulmonary hypertension
     Dosage: UNK
     Route: 048
  7. FLUCONAZOLE [Suspect]
     Active Substance: FLUCONAZOLE
     Indication: COVID-19 pneumonia
     Dosage: UNK
     Route: 065
  8. IMMUNE GLOBULIN NOS [Suspect]
     Active Substance: IMMUNE GLOBULIN NOS
     Indication: COVID-19 pneumonia
     Dosage: 2 GRAM PER KILOGRAM
     Route: 042
  9. IMMUNE GLOBULIN NOS [Suspect]
     Active Substance: IMMUNE GLOBULIN NOS
     Dosage: 1 GRAM PER KILOGRAM
     Route: 042
  10. DEXAMETHASONE [Suspect]
     Active Substance: DEXAMETHASONE
     Indication: COVID-19 pneumonia
     Dosage: UNK (CUMULATIVE DOSE 3 MG OVER 6 DAYS)
     Route: 042
  11. FUROSEMIDE [Suspect]
     Active Substance: FUROSEMIDE
     Indication: Pulmonary hypertension
     Dosage: UNK
     Route: 042
  12. VASOPRESSIN [Suspect]
     Active Substance: VASOPRESSIN
     Indication: Pulmonary hypertension
     Dosage: 0.5 MIU/KG/MIN, INFUSION
     Route: 042
  13. MILRINONE [Suspect]
     Active Substance: MILRINONE
     Indication: Pulmonary hypertension
     Dosage: 0.6 MICROGRAM/KILOGRAM, QMINUTE (INFUSION)
     Route: 042
  14. EPINEPHRINE [Suspect]
     Active Substance: EPINEPHRINE
     Indication: Pulmonary hypertension
     Dosage: 0.5 MICROGRAM/KILOGRAM, QMINUTE (INFUSION)
     Route: 042
  15. DOBUTAMINE [Concomitant]
     Active Substance: DOBUTAMINE HYDROCHLORIDE
     Indication: Shock
     Dosage: UNK, INFUSION
     Route: 042
  16. DEXTROSE [Concomitant]
     Active Substance: DEXTROSE
     Indication: Hypoglycaemia
     Dosage: 8 MILLIGRAM/KILOGRAM, QMINUTE, BOLUS, (INFUSION)
     Route: 042
  17. HEPARIN [Concomitant]
     Active Substance: HEPARIN SODIUM
     Indication: Thrombosis prophylaxis
     Dosage: 15 INTERNATIONAL UNIT/KILOGRAM, QH (INFUSION)
     Route: 042

REACTIONS (3)
  - Drug ineffective for unapproved indication [Fatal]
  - Drug ineffective [Fatal]
  - Off label use [Unknown]
